FAERS Safety Report 8163812-7 (Version None)
Quarter: 2012Q1

REPORT INFORMATION
  Report Type: 
  Country: None (occurrence: None)
  Receive Date: 20120224
  Receipt Date: 20120223
  Transmission Date: 20120608
  Serious: Yes (Hospitalization)
  Sender: FDA-Public Use
  Company Number: US-PFIZER INC-K201100261

PATIENT
  Sex: Female

DRUGS (9)
  1. METFORMIN HCL [Suspect]
     Dosage: 2000 MG, UNK
     Dates: start: 20100823
  2. INSULIN GLARGINE [Suspect]
     Indication: TYPE 2 DIABETES MELLITUS
     Dosage: 35 IU, UNK
  3. PLACEBO [Suspect]
     Indication: TYPE 2 DIABETES MELLITUS
     Dosage: UNK
  4. GLUCAGON [Suspect]
     Indication: TYPE 2 DIABETES MELLITUS
     Dosage: 1 MG, UNK
  5. SEPTRA [Interacting]
     Dosage: 1600 MG, UNK
     Route: 048
     Dates: start: 20101205, end: 20101211
  6. SAXAGLIPTIN [Suspect]
     Indication: TYPE 2 DIABETES MELLITUS
     Dosage: UNK
     Dates: start: 20100823
  7. COUMADIN [Interacting]
     Dosage: UNK
  8. ASPIRIN [Concomitant]
  9. INSULIN LISPRO [Suspect]
     Indication: TYPE 2 DIABETES MELLITUS
     Dosage: 10 IU, UNK

REACTIONS (7)
  - DRUG INTERACTION [None]
  - DYSPNOEA [None]
  - NAUSEA [None]
  - SKIN ULCER [None]
  - CELLULITIS [None]
  - PULMONARY OEDEMA [None]
  - INTERNATIONAL NORMALISED RATIO INCREASED [None]
